FAERS Safety Report 6463978-0 (Version None)
Quarter: 2009Q4

REPORT INFORMATION
  Report Type: 
  Country: None (occurrence: None)
  Receive Date: 20091201
  Receipt Date: 20091121
  Transmission Date: 20100525
  Serious: Yes (Life-Threatening, Other)
  Sender: FDA-Public Use
  Company Number: CA-ROCHE-670687

PATIENT
  Age: 19 Year
  Sex: Female
  Weight: 40 kg

DRUGS (14)
  1. TAMIFLU [Suspect]
     Indication: H1N1 INFLUENZA
     Dosage: FREQUENCY BIDX10 DAYS
     Route: 048
     Dates: start: 20091023, end: 20091102
  2. TAMIFLU [Suspect]
     Route: 048
     Dates: start: 20091110
  3. TAMIFLU [Suspect]
     Dosage: DOSE INCREASED
     Route: 048
     Dates: start: 20091117
  4. MEROPENEM [Concomitant]
     Route: 042
     Dates: start: 20091001
  5. CEFTAZIDIME [Concomitant]
     Route: 042
     Dates: start: 20091001
  6. PIPERACILLIN [Concomitant]
     Route: 042
     Dates: start: 20091001
  7. FAMOTIDINE [Concomitant]
     Indication: PROPHYLAXIS AGAINST GASTROINTESTINAL ULCER
  8. CYCLOSPORINE [Concomitant]
     Indication: TRANSPLANT REJECTION
     Dosage: ROUTE: ET
     Route: 050
     Dates: start: 20091101
  9. FUROSEMIDE [Concomitant]
     Route: 042
  10. PREDNISONE TAB [Concomitant]
     Dosage: INDICATION: ANTI-REJECTION
     Route: 048
  11. CELLCEPT [Concomitant]
     Dosage: ROUTE: ET, INDICATION: ANTI-REJECTION
  12. MILRINONE [Concomitant]
     Route: 042
  13. MIDAZOLAM HCL [Concomitant]
     Route: 042
  14. VASOPRESSIN [Concomitant]
     Route: 042

REACTIONS (2)
  - LUNG INFECTION [None]
  - PATHOGEN RESISTANCE [None]
